FAERS Safety Report 25545832 (Version 1)
Quarter: 2025Q3

REPORT INFORMATION
  Report Type: Spontaneous
  Country: EU (occurrence: EU)
  Receive Date: 20250712
  Receipt Date: 20250712
  Transmission Date: 20251020
  Serious: Yes (Other)
  Sender: AMGEN
  Company Number: EU-AMGEN-NLDSP2025132243

PATIENT
  Age: 12 Year
  Sex: Male
  Weight: 32 kg

DRUGS (4)
  1. XGEVA [Suspect]
     Active Substance: DENOSUMAB
     Indication: Bone giant cell tumour benign
     Dosage: 45 MILLIGRAM, QWK, FOR 3 DOSES (1.4 MG/KG) (38 MG/M2 )
     Route: 026
  2. XGEVA [Suspect]
     Active Substance: DENOSUMAB
     Dosage: UNK, Q4WK, FOR 5 DOSES
     Route: 026
  3. CALCIUM [Concomitant]
     Active Substance: CALCIUM
     Dosage: 500 MILLIGRAM, QD
  4. VITAMIN D [Concomitant]
     Active Substance: VITAMIN D NOS

REACTIONS (5)
  - Acute kidney injury [Unknown]
  - Hypercalcaemia [Unknown]
  - Blood parathyroid hormone decreased [Unknown]
  - Vitamin D decreased [Unknown]
  - Off label use [Unknown]
